FAERS Safety Report 6156850-7 (Version None)
Quarter: 2009Q2

REPORT INFORMATION
  Report Type: 
  Country: None (occurrence: None)
  Receive Date: 20090416
  Receipt Date: 20090406
  Transmission Date: 20091009
  Serious: Yes (Other)
  Sender: FDA-Public Use
  Company Number: US-ELI_LILLY_AND_COMPANY-US200901000581

PATIENT
  Sex: Female
  Weight: 53.515 kg

DRUGS (10)
  1. CYMBALTA [Suspect]
     Indication: DEPRESSION
     Dosage: 30 MG, UNK
     Dates: start: 20070723
  2. CYMBALTA [Suspect]
     Dosage: 60 MG, UNK
     Dates: start: 20070731
  3. CYMBALTA [Suspect]
     Dosage: 90 MG, UNK
     Dates: start: 20070801
  4. CYMBALTA [Suspect]
     Dosage: 60 MG, UNK
     Dates: start: 20070901
  5. CYMBALTA [Suspect]
     Dosage: 30 MG, UNK
     Dates: start: 20071001
  6. CYMBALTA [Suspect]
     Dosage: 60 MG, UNK
     Dates: start: 20080901, end: 20081210
  7. CYMBALTA [Suspect]
     Dosage: 30 MG, UNK
     Dates: end: 20081203
  8. CYMBALTA [Suspect]
     Dosage: 20 MG, UNK
     Dates: start: 20081204, end: 20081212
  9. WELLBUTRIN [Concomitant]
     Indication: DEPRESSION
     Dosage: 300 MG, UNK
     Dates: start: 20080909, end: 20081212
  10. ADDERALL 10 [Concomitant]
     Indication: ATTENTION DEFICIT/HYPERACTIVITY DISORDER
     Dosage: 20 MG, UNK

REACTIONS (4)
  - ALANINE AMINOTRANSFERASE INCREASED [None]
  - ASPARTATE AMINOTRANSFERASE INCREASED [None]
  - CHROMATURIA [None]
  - NAUSEA [None]
